FAERS Safety Report 24605778 (Version 2)
Quarter: 2025Q3

REPORT INFORMATION
  Report Type: Report from Study
  Country: RU (occurrence: RU)
  Receive Date: 20241111
  Receipt Date: 20250809
  Transmission Date: 20251021
  Serious: Yes (Other)
  Sender: ALEXION PHARMACEUTICALS
  Company Number: RU-AstraZeneca-CH-00741031A

PATIENT
  Age: 12 Year
  Sex: Male
  Weight: 48 kg

DRUGS (5)
  1. SELUMETINIB [Suspect]
     Active Substance: SELUMETINIB
     Indication: Neurofibromatosis
  2. Oflomelid [Concomitant]
  3. Sulsen [Concomitant]
     Route: 065
  4. Citrovit [Concomitant]
     Route: 065
  5. Citrovit [Concomitant]
     Route: 065

REACTIONS (3)
  - Seborrhoeic dermatitis [Recovered/Resolved]
  - Paronychia [Not Recovered/Not Resolved]
  - Ingrowing nail [Recovered/Resolved with Sequelae]

NARRATIVE: CASE EVENT DATE: 20230501
